FAERS Safety Report 5028349-2 (Version None)
Quarter: 2006Q2

REPORT INFORMATION
  Report Type: 
  Country: None (occurrence: None)
  Receive Date: 20060613
  Receipt Date: 20060604
  Transmission Date: 20061013
  Serious: Yes (Hospitalization)
  Sender: FDA-Public Use
  Company Number: 2006RL000160

PATIENT
  Age: 71 Year
  Sex: Female
  Weight: 95.709 kg

DRUGS (8)
  1. RYTHMOL [Suspect]
     Indication: ATRIAL FIBRILLATION
     Dosage: SEE IMAGE
     Route: 048
     Dates: start: 20051121, end: 20051129
  2. RYTHMOL [Suspect]
     Indication: ATRIAL FIBRILLATION
     Dosage: SEE IMAGE
     Route: 048
     Dates: start: 20051130, end: 20051229
  3. VYTORIN [Concomitant]
  4. IMDUR [Concomitant]
  5. PROTONIX [Concomitant]
  6. SINGULAIR [Concomitant]
  7. AMIODARONE HCL [Concomitant]
  8. AMIODARONE HCL [Concomitant]

REACTIONS (7)
  - ATRIAL FIBRILLATION [None]
  - CHEST PAIN [None]
  - DRUG INEFFECTIVE [None]
  - EAR PAIN [None]
  - MUSCULOSKELETAL DISCOMFORT [None]
  - RHINITIS [None]
  - SINUS HEADACHE [None]
